FAERS Safety Report 18571509 (Version 1)
Quarter: 2020Q4

REPORT INFORMATION
  Report Type: Spontaneous
  Country: FR (occurrence: FR)
  Receive Date: 20201202
  Receipt Date: 20201202
  Transmission Date: 20210114
  Serious: Yes (Other)
  Sender: FDA-Public Use
  Company Number: FR-TEVA-2020-FR-1853454

PATIENT
  Age: 45 Year
  Sex: Female

DRUGS (1)
  1. VINCRISTINE TEVA [Suspect]
     Active Substance: VINCRISTINE
     Indication: WRONG PRODUCT ADMINISTERED
     Dosage: 1 GTT
     Route: 047
     Dates: start: 20201027, end: 20201027

REACTIONS (2)
  - Ocular discomfort [Recovering/Resolving]
  - Wrong product administered [Recovered/Resolved]

NARRATIVE: CASE EVENT DATE: 20201027
